FAERS Safety Report 9790697 (Version 1)
Quarter: 2013Q4

REPORT INFORMATION
  Report Type: Spontaneous
  Country: DE (occurrence: DE)
  Receive Date: 20131231
  Receipt Date: 20131231
  Transmission Date: 20140711
  Serious: Yes (Hospitalization, Congenital Anomaly, Other)
  Sender: FDA-Public Use
  Company Number: DE-PFIZER INC-2013373435

PATIENT
  Age: 1 Day
  Sex: Male

DRUGS (3)
  1. TREVILOR RETARD [Suspect]
     Indication: ANXIETY DISORDER
     Dosage: 225 MG, DAILY (0. - 37.3. GESTATIONAL WEEK)
     Route: 064
     Dates: start: 20090708
  2. TREVILOR RETARD [Suspect]
     Indication: DEPRESSION
     Dosage: 150 MG, DAILY
     Route: 064
     Dates: end: 20100327
  3. LYRICA [Suspect]
     Indication: SLEEP DISORDER
     Dosage: 0. - 18. GESTATIONAL WEEK, FIRST TRIMESTER
     Route: 064
     Dates: start: 20090708

REACTIONS (8)
  - Maternal exposure during pregnancy [Unknown]
  - Feeding disorder neonatal [Recovered/Resolved]
  - Congenital tracheomalacia [Unknown]
  - Bradycardia neonatal [Recovered/Resolved]
  - Neonatal hypoxia [Recovered/Resolved]
  - Hypertonia neonatal [Recovered/Resolved]
  - Agitation neonatal [Recovering/Resolving]
  - Neonatal respiratory distress syndrome [Recovered/Resolved]
